FAERS Safety Report 8015678-3 (Version None)
Quarter: 2011Q4

REPORT INFORMATION
  Report Type: 
  Country: None (occurrence: None)
  Receive Date: 20111230
  Receipt Date: 20111220
  Transmission Date: 20120403
  Serious: Yes (Other)
  Sender: FDA-Public Use
  Company Number: US-BAYER-2011-122749

PATIENT
  Sex: Female

DRUGS (1)
  1. MIRENA [Suspect]
     Indication: CONTRACEPTION
     Dosage: 20 ?G/D, UNK
     Route: 015
     Dates: start: 20110701

REACTIONS (5)
  - MEDICAL DEVICE DISCOMFORT [None]
  - EAR DISCOMFORT [None]
  - VULVOVAGINAL MYCOTIC INFECTION [None]
  - VAGINAL DISCHARGE [None]
  - WEIGHT INCREASED [None]
